FAERS Safety Report 9208386 (Version 2)
Quarter: 2013Q2

REPORT INFORMATION
  Report Type: Report from Study
  Country: AT (occurrence: AT)
  Receive Date: 20130404
  Receipt Date: 20130419
  Transmission Date: 20140414
  Serious: Yes (Hospitalization)
  Sender: FDA-Public Use
  Company Number: AT-BIOGENIDEC-2013BI023889

PATIENT
  Age: 54 Year
  Sex: Female
  Weight: 47 kg

DRUGS (4)
  1. BG00012 [Suspect]
     Indication: MULTIPLE SCLEROSIS
     Route: 048
     Dates: start: 20100824
  2. OLEOVIT [Concomitant]
     Indication: OSTEOPOROSIS
     Route: 048
     Dates: start: 20101218
  3. INKONTAN [Concomitant]
     Indication: BLADDER DISORDER
     Route: 048
     Dates: start: 20101112
  4. NEUROTOP [Concomitant]
     Indication: PAIN IN EXTREMITY
     Route: 048
     Dates: start: 20130109

REACTIONS (1)
  - Back pain [Recovered/Resolved with Sequelae]
